FAERS Safety Report 4592725-2 (Version None)
Quarter: 2005Q1

REPORT INFORMATION
  Report Type: 
  Country: None (occurrence: None)
  Receive Date: 20050218
  Receipt Date: 20050209
  Transmission Date: 20050727
  Serious: Yes (Hospitalization)
  Sender: FDA-Public Use
  Company Number: 2005SE00816

PATIENT
  Age: 61 Year
  Sex: Male

DRUGS (4)
  1. BLOPRESS [Suspect]
     Indication: HYPERTENSION
     Dosage: 8 MG QD; PO
     Route: 048
     Dates: end: 20050128
  2. BASEN [Suspect]
     Indication: DIABETES MELLITUS
     Dosage: 0.2 MG TID; PO
     Route: 048
     Dates: end: 20050128
  3. ADALAT [Suspect]
     Dosage: 20 MG BID; PO
     Route: 048
     Dates: end: 20050124
  4. NORVASC [Suspect]
     Dosage: 5 MG, BID; PO
     Route: 048
     Dates: start: 20050125, end: 20050128

REACTIONS (5)
  - ANAEMIA [None]
  - C-REACTIVE PROTEIN INCREASED [None]
  - METABOLIC ACIDOSIS [None]
  - NEPHRITIS INTERSTITIAL [None]
  - PYREXIA [None]
